FAERS Safety Report 19481499 (Version 1)
Quarter: 2021Q3

REPORT INFORMATION
  Report Type: Report from Study
  Country: CA (occurrence: CA)
  Receive Date: 20210701
  Receipt Date: 20210701
  Transmission Date: 20211014
  Serious: Yes (Other)
  Sender: FDA-Public Use
  Company Number: CA-REGENERON PHARMACEUTICALS, INC.-2021-64554

PATIENT

DRUGS (1)
  1. EYLEA [Suspect]
     Active Substance: AFLIBERCEPT
     Indication: RETINAL VEIN OCCLUSION
     Dosage: UNK
     Dates: start: 20210622

REACTIONS (4)
  - Eye swelling [Unknown]
  - Loss of consciousness [Unknown]
  - Feeling abnormal [Unknown]
  - Emotional distress [Unknown]

NARRATIVE: CASE EVENT DATE: 20210623
